FAERS Safety Report 4954193-8 (Version None)
Quarter: 2006Q1

REPORT INFORMATION
  Report Type: 
  Country: None (occurrence: None)
  Receive Date: 20060327
  Receipt Date: 20050928
  Transmission Date: 20060701
  Serious: Yes (Disabling, Other)
  Sender: FDA-Public Use
  Company Number: US-MERCK-0509USA04381

PATIENT
  Sex: Male
  Weight: 111 kg

DRUGS (9)
  1. VIOXX [Suspect]
     Indication: ARTHRITIS
     Route: 048
     Dates: start: 20010411, end: 20041020
  2. VIOXX [Suspect]
     Route: 048
     Dates: start: 20020101, end: 20041020
  3. BEXTRA [Suspect]
     Route: 065
  4. CELEBREX [Suspect]
     Route: 065
  5. FUROSEMIDE [Concomitant]
     Route: 065
  6. POTASSIUM CHLORIDE [Concomitant]
     Route: 065
  7. VASOTEC RPD [Concomitant]
     Route: 065
  8. ATACAND [Concomitant]
     Route: 065
  9. MAGNESIUM (UNSPECIFIED) [Concomitant]
     Route: 065

REACTIONS (5)
  - CEREBROVASCULAR ACCIDENT [None]
  - FINGER AMPUTATION [None]
  - GLUCOSE TOLERANCE IMPAIRED [None]
  - INJURY [None]
  - MYOCARDIAL INFARCTION [None]
